FAERS Safety Report 18374837 (Version 1)
Quarter: 2020Q4

REPORT INFORMATION
  Report Type: Spontaneous
  Country: LT (occurrence: LT)
  Receive Date: 20201013
  Receipt Date: 20201013
  Transmission Date: 20210114
  Serious: Yes (Other)
  Sender: FDA-Public Use
  Company Number: LT-TEVA-2020-LT-1836922

PATIENT
  Age: 77 Year
  Sex: Male
  Weight: 69 kg

DRUGS (6)
  1. MOXONIDIN 0,4 MG [Concomitant]
     Dosage: .5 DOSAGE FORMS DAILY;  IN THE MORNINGS
     Route: 048
     Dates: start: 20200801
  2. ALOTENDIN 10 MG/5 MG [Concomitant]
     Dosage: 1 DOSAGE FORMS DAILY;
     Route: 048
     Dates: start: 20200724
  3. FINLEPSIN 200 MG [Suspect]
     Active Substance: CARBAMAZEPINE
     Indication: EPILEPSY
     Dosage: 3 DOSAGE FORMS DAILY;
     Route: 048
     Dates: start: 20200721, end: 20200723
  4. CANOCOMBI 32 MG/12,5 MG [Concomitant]
     Dosage: 1 DOSAGE FORMS DAILY;
     Route: 048
     Dates: start: 20200724
  5. MOXONIDIN 0,4 MG [Concomitant]
     Dates: start: 20200721, end: 20200723
  6. KAPTOPRIL 50 MG [Concomitant]
     Dosage: WHEN NEEDED
     Route: 048

REACTIONS (4)
  - Loss of control of legs [Recovered/Resolved]
  - Hallucination [Recovered/Resolved]
  - Coordination abnormal [Recovered/Resolved]
  - Aggression [Recovered/Resolved]

NARRATIVE: CASE EVENT DATE: 20200721
